FAERS Safety Report 16214678 (Version 4)
Quarter: 2020Q2

REPORT INFORMATION
  Report Type: Spontaneous
  Country: US (occurrence: US)
  Receive Date: 20190418
  Receipt Date: 20200408
  Transmission Date: 20200713
  Serious: Yes (Other)
  Sender: FDA-Public Use
  Company Number: US-GILEAD-2019-0402841

PATIENT
  Age: 48 Year
  Sex: Male

DRUGS (33)
  1. AZITHROMYCIN ANHYDROUS. [Concomitant]
     Active Substance: AZITHROMYCIN ANHYDROUS
  2. PREZISTA [Concomitant]
     Active Substance: DARUNAVIR ETHANOLATE
  3. APTIVUS [Concomitant]
     Active Substance: TIPRANAVIR
  4. PROZAC [Concomitant]
     Active Substance: FLUOXETINE HYDROCHLORIDE
  5. LOPID [Concomitant]
     Active Substance: GEMFIBROZIL
  6. SELZENTRY [Concomitant]
     Active Substance: MARAVIROC
  7. VIREAD [Suspect]
     Active Substance: TENOFOVIR DISOPROXIL FUMARATE
     Indication: HIV INFECTION
     Dosage: UNK
     Route: 065
     Dates: start: 200409, end: 200708
  8. NOVOLOG [Concomitant]
     Active Substance: INSULIN ASPART
  9. DESYREL [Concomitant]
     Active Substance: TRAZODONE HYDROCHLORIDE
  10. HYDROXYZINE [Concomitant]
     Active Substance: HYDROXYZINE HYDROCHLORIDE
  11. VIAGRA [Concomitant]
     Active Substance: SILDENAFIL CITRATE
  12. LANTUS [Concomitant]
     Active Substance: INSULIN GLARGINE
  13. LEVEMIR [Concomitant]
     Active Substance: INSULIN DETEMIR
  14. FUZEON [Concomitant]
     Active Substance: ENFUVIRTIDE
  15. NASONEX [Concomitant]
     Active Substance: MOMETASONE FUROATE
  16. TRUVADA [Suspect]
     Active Substance: EMTRICITABINE\TENOFOVIR DISOPROXIL FUMARATE
     Indication: HIV INFECTION
     Dosage: UNK
     Route: 048
     Dates: start: 200708, end: 20181207
  17. LISINOPRIL. [Concomitant]
     Active Substance: LISINOPRIL
  18. ISENTRESS [Concomitant]
     Active Substance: RALTEGRAVIR POTASSIUM
  19. METFORMIN [Concomitant]
     Active Substance: METFORMIN HYDROCHLORIDE
  20. LATUDA [Concomitant]
     Active Substance: LURASIDONE HYDROCHLORIDE
  21. GENVOYA [Concomitant]
     Active Substance: COBICISTAT\ELVITEGRAVIR\EMTRICITABINE\TENOFOVIR ALAFENAMIDE FUMARATE
  22. SYMTUZA [Concomitant]
     Active Substance: COBICISTAT\DARUNAVIR\EMTRICITABINE\TENOFOVIR ALAFENAMIDE
  23. CLONAZEPAM. [Concomitant]
     Active Substance: CLONAZEPAM
  24. BIKTARVY [Concomitant]
     Active Substance: BICTEGRAVIR SODIUM\EMTRICITABINE\TENOFOVIR ALAFENAMIDE FUMARATE
  25. GLIPIZIDE AND METFORMIN HCL [Concomitant]
     Active Substance: GLIPIZIDE\METFORMIN HYDROCHLORIDE
  26. INTELENCE [Concomitant]
     Active Substance: ETRAVIRINE
  27. AMLODIPINE [Concomitant]
     Active Substance: AMLODIPINE BESYLATE
  28. CLONIDINE. [Concomitant]
     Active Substance: CLONIDINE
  29. ALBUTEROL HFA [Concomitant]
     Active Substance: ALBUTEROL SULFATE
  30. ATORVASTATIN [Concomitant]
     Active Substance: ATORVASTATIN
  31. DOXYCYCLINE. [Concomitant]
     Active Substance: DOXYCYCLINE
  32. ASPIRIN (E.C.) [Concomitant]
     Active Substance: ASPIRIN
  33. CRESTOR [Concomitant]
     Active Substance: ROSUVASTATIN CALCIUM

REACTIONS (9)
  - Emotional distress [Unknown]
  - Nephropathy [Unknown]
  - Tooth loss [Unknown]
  - Anhedonia [Unknown]
  - Pain [Unknown]
  - Bone density decreased [Unknown]
  - Economic problem [Unknown]
  - Anxiety [Unknown]
  - Chronic kidney disease [Not Recovered/Not Resolved]

NARRATIVE: CASE EVENT DATE: 20180213
